FAERS Safety Report 12268965 (Version 1)
Quarter: 2016Q2

REPORT INFORMATION
  Report Type: Spontaneous
  Country: JP (occurrence: JP)
  Receive Date: 20160414
  Receipt Date: 20160414
  Transmission Date: 20160815
  Serious: Yes (Death)
  Sender: FDA-Public Use
  Company Number: JP-PFIZER INC-2016202984

PATIENT
  Age: 64 Year
  Sex: Male

DRUGS (1)
  1. TORISEL [Suspect]
     Active Substance: TEMSIROLIMUS
     Indication: RENAL CELL CARCINOMA
     Dosage: 25 MG, DAILY
     Route: 041
     Dates: start: 20160128, end: 20160204

REACTIONS (2)
  - Bronchial haemorrhage [Fatal]
  - Asphyxia [Fatal]

NARRATIVE: CASE EVENT DATE: 20160210
